FAERS Safety Report 13974144 (Version 1)
Quarter: 2017Q3

REPORT INFORMATION
  Report Type: Spontaneous
  Country: US (occurrence: US)
  Receive Date: 20170914
  Receipt Date: 20170914
  Transmission Date: 20171128
  Serious: Yes (Other)
  Sender: FDA-Public Use
  Company Number: US-ASTELLAS-2017US004053

PATIENT
  Age: 75 Year
  Sex: Male

DRUGS (2)
  1. XTANDI [Suspect]
     Active Substance: ENZALUTAMIDE
     Indication: HORMONE-REFRACTORY PROSTATE CANCER
     Route: 048
     Dates: start: 20161229, end: 20170220
  2. LUPRON [Suspect]
     Active Substance: LEUPROLIDE ACETATE
     Indication: PRODUCT USED FOR UNKNOWN INDICATION
     Dosage: UNK, UNKNOWN FREQ.
     Route: 065
     Dates: start: 2012

REACTIONS (10)
  - Hypoglycaemia [Recovered/Resolved]
  - Feeling abnormal [Recovered/Resolved]
  - Sinusitis [Unknown]
  - Blood pressure increased [Recovered/Resolved]
  - Hypertension [Unknown]
  - Nervousness [Unknown]
  - Blood glucose fluctuation [Unknown]
  - Tremor [Unknown]
  - Dyspnoea [Recovered/Resolved]
  - Nausea [Unknown]

NARRATIVE: CASE EVENT DATE: 201701
